FAERS Safety Report 7313888-1 (Version None)
Quarter: 2011Q1

REPORT INFORMATION
  Report Type: 
  Country: None (occurrence: None)
  Receive Date: 20110225
  Receipt Date: 20110216
  Transmission Date: 20110831
  Serious: Yes (Hospitalization)
  Sender: FDA-Public Use
  Company Number: US-AMGEN-USASP2011009234

PATIENT
  Age: 59 Year
  Sex: Female

DRUGS (1)
  1. ENBREL [Suspect]
     Indication: PSORIASIS
     Dosage: 50 MG, QWK
     Dates: start: 20100901

REACTIONS (10)
  - LOSS OF CONSCIOUSNESS [None]
  - CONTUSION [None]
  - URINARY TRACT INFECTION [None]
  - PSORIASIS [None]
  - BALANCE DISORDER [None]
  - INJECTION SITE PAIN [None]
  - HEPATIC CIRRHOSIS [None]
  - INJECTION SITE ERYTHEMA [None]
  - FALL [None]
  - INJECTION SITE RASH [None]
